FAERS Safety Report 12795834 (Version 1)
Quarter: 2016Q3

REPORT INFORMATION
  Report Type: Report from Study
  Country: US (occurrence: US)
  Receive Date: 20160929
  Receipt Date: 20160929
  Transmission Date: 20161109
  Serious: Yes (Other)
  Sender: FDA-Public Use
  Company Number: US-AMGEN-USASL2016132803

PATIENT

DRUGS (1)
  1. KYPROLIS [Suspect]
     Active Substance: CARFILZOMIB
     Indication: PRODUCT USED FOR UNKNOWN INDICATION
     Dosage: UNK
     Route: 065

REACTIONS (19)
  - Pancytopenia [Unknown]
  - Chondropathy [Unknown]
  - Chest pain [Unknown]
  - Magnesium metabolism disorder [Unknown]
  - Nausea [Unknown]
  - Dyspnoea [Unknown]
  - Polyneuropathy [Unknown]
  - Respiratory syncytial virus infection [Unknown]
  - Pneumonia [Unknown]
  - Vitamin D deficiency [Unknown]
  - Bone disorder [Unknown]
  - Abdominal pain [Unknown]
  - Gastrooesophageal reflux disease [Unknown]
  - Vomiting [Unknown]
  - Essential hypertension [Unknown]
  - Herpes dermatitis [Unknown]
  - Anaemia [Unknown]
  - Arthralgia [Unknown]
  - Herpes simplex [Unknown]

NARRATIVE: CASE EVENT DATE: 20150316
